FAERS Safety Report 6876673-0 (Version None)
Quarter: 2010Q3

REPORT INFORMATION
  Report Type: 
  Country: None (occurrence: None)
  Receive Date: 20100727
  Receipt Date: 20100719
  Transmission Date: 20110219
  Serious: Yes (Hospitalization, Other)
  Sender: FDA-Public Use
  Company Number: BR-ROCHE-711371

PATIENT
  Sex: Female
  Weight: 61 kg

DRUGS (7)
  1. ROACUTAN [Suspect]
     Indication: ACNE
     Dosage: STRENTGH: 10 MG
     Route: 048
     Dates: start: 20090801, end: 20091001
  2. ROACUTAN [Suspect]
     Dosage: STRENTGH: 20 MG, DOSE INCREASED
     Route: 048
     Dates: start: 20091001, end: 20091101
  3. ROACUTAN [Suspect]
     Dosage: STRENTGH: 10 MG, DOSE DECREASED
     Route: 048
     Dates: start: 20091101, end: 20100513
  4. ACETAMINOPHEN [Concomitant]
     Indication: SINUSITIS
     Dosage: FORM; TAB/DROP, 25 DROPS OR 1 TAB EACH 6 HR/ AS NEEDED
     Route: 048
  5. LEVOTHYROXINE SODIUM [Concomitant]
     Indication: HYPOTHYROIDISM
     Dosage: 1 TAB/DAY FASTING
     Route: 048
     Dates: start: 19880101, end: 20100501
  6. LEVOTHYROXINE SODIUM [Concomitant]
     Dosage: 1 TAB/DAY FASTING
     Route: 048
     Dates: start: 20100501
  7. NIMESULID [Concomitant]
     Indication: SINUSITIS
     Dosage: SPORADICALLY

REACTIONS (16)
  - BLOOD GLUCOSE INCREASED [None]
  - BLOOD THYROID STIMULATING HORMONE INCREASED [None]
  - CHAPPED LIPS [None]
  - DIZZINESS [None]
  - HAEMOGLOBIN URINE PRESENT [None]
  - HAIR TEXTURE ABNORMAL [None]
  - HEADACHE [None]
  - HYPOTENSION [None]
  - MALAISE [None]
  - MEDICATION ERROR [None]
  - MYOCARDIAL INFARCTION [None]
  - NAUSEA [None]
  - RED BLOOD CELLS URINE POSITIVE [None]
  - URINARY SEDIMENT PRESENT [None]
  - VOMITING [None]
  - WHITE BLOOD CELLS URINE POSITIVE [None]
